FAERS Safety Report 7974484-6 (Version None)
Quarter: 2011Q4

REPORT INFORMATION
  Report Type: 
  Country: None (occurrence: None)
  Receive Date: 20111213
  Receipt Date: 20111208
  Transmission Date: 20120403
  Serious: Yes (Death, Other)
  Sender: FDA-Public Use
  Company Number: US-CELGENEUS-163-21880-11090534

PATIENT
  Sex: Female

DRUGS (28)
  1. ASPIRIN [Concomitant]
     Route: 065
  2. CELEXA [Concomitant]
     Route: 065
  3. DILAUDID [Concomitant]
     Route: 065
  4. MELPHALAN HYDROCHLORIDE [Concomitant]
     Route: 065
  5. PROMETHAZINE [Concomitant]
     Route: 065
  6. VALTREX [Concomitant]
     Route: 065
  7. ZOCOR [Concomitant]
     Route: 065
  8. COMBIGAN [Concomitant]
     Route: 065
  9. NITRATES [Concomitant]
     Route: 065
  10. EPOGEN [Concomitant]
     Route: 065
  11. IMDUR [Concomitant]
     Route: 065
  12. STEROIDS [Concomitant]
     Route: 041
     Dates: start: 20110201
  13. VITAMIN B-12 [Concomitant]
     Indication: VITAMIN B12 DEFICIENCY
     Route: 065
  14. SODIUM BICARBONATE [Concomitant]
     Indication: METABOLIC ACIDOSIS
     Route: 065
     Dates: start: 20110201
  15. MUCOMYST [Concomitant]
     Route: 065
  16. REVLIMID [Suspect]
     Indication: MULTIPLE MYELOMA
     Dosage: 25 MILLIGRAM
     Route: 048
     Dates: start: 20070110
  17. SIMVASTATIN [Concomitant]
     Route: 065
  18. ZOMETA [Concomitant]
     Route: 065
  19. HEPARIN [Concomitant]
     Route: 041
     Dates: start: 20110201
  20. REVLIMID [Suspect]
     Dosage: 5 MILLIGRAM
     Route: 048
     Dates: start: 20110101, end: 20110801
  21. INDERAL [Concomitant]
     Route: 065
  22. MAGNESIUM  OXIDE [Concomitant]
     Route: 065
  23. PREDNISONE TAB [Concomitant]
     Route: 065
  24. SOLU-MEDROL [Concomitant]
     Route: 041
  25. REVLIMID [Suspect]
     Dosage: 2.5 MILLIGRAM
     Route: 048
     Dates: start: 20110301
  26. VELCADE [Concomitant]
     Route: 065
  27. WHOLE BLOOD [Concomitant]
     Route: 065
  28. BUTALBITAL [Concomitant]
     Route: 065

REACTIONS (2)
  - RENAL FAILURE [None]
  - PANCYTOPENIA [None]
